FAERS Safety Report 5586195-5 (Version None)
Quarter: 2008Q1

REPORT INFORMATION
  Report Type: 
  Country: None (occurrence: None)
  Receive Date: 20080107
  Receipt Date: 20071231
  Transmission Date: 20080703
  Serious: Yes (Other)
  Sender: FDA-Public Use
  Company Number: CHPA2007US14604

PATIENT
  Age: 70 Year
  Sex: Female

DRUGS (1)
  1. BENEFIBER W/ WHEAT DEXTRIN (NCH)(WHEAT DEXTRIN) POWDER [Suspect]
     Indication: DIVERTICULUM
     Dosage: 10 TSP, QD X 1 MONTH, ORAL
     Route: 048

REACTIONS (1)
  - HAEMATOCHEZIA [None]
